FAERS Safety Report 5213129-5 (Version None)
Quarter: 2007Q1

REPORT INFORMATION
  Report Type: 
  Country: None (occurrence: None)
  Receive Date: 20070116
  Receipt Date: 20070102
  Transmission Date: 20070707
  Serious: Yes (Other)
  Sender: FDA-Public Use
  Company Number: 07011973

PATIENT
  Age: 48 Year
  Sex: Female

DRUGS (1)
  1. LISINOPRIL [Suspect]
     Indication: PROTEINURIA
     Dosage: 5MG, QD, ORAL
     Route: 048

REACTIONS (3)
  - ANGIOEDEMA [None]
  - ASCITES [None]
  - GASTROINTESTINAL DISORDER [None]
